FAERS Safety Report 6531307-X (Version None)
Quarter: 2009Q4

REPORT INFORMATION
  Report Type: 
  Country: None (occurrence: None)
  Receive Date: 20091222
  Receipt Date: 20091111
  Transmission Date: 20100525
  Serious: No
  Sender: FDA-Public Use
  Company Number: ALL1-2009-03623

PATIENT
  Age: 10 Year
  Sex: Male

DRUGS (1)
  1. VYVANSE [Suspect]
     Indication: DRUG USE FOR UNKNOWN INDICATION
     Dosage: 30 MG, 1X/DAY:QD, ORAL
     Route: 048

REACTIONS (6)
  - AGGRESSION [None]
  - ASTHENIA [None]
  - DECREASED APPETITE [None]
  - DELUSIONAL PERCEPTION [None]
  - INITIAL INSOMNIA [None]
  - NEGATIVISM [None]
